FAERS Safety Report 7209193-4 (Version None)
Quarter: 2011Q1

REPORT INFORMATION
  Report Type: 
  Country: None (occurrence: None)
  Receive Date: 20110104
  Receipt Date: 20101215
  Transmission Date: 20110831
  Serious: Yes (Congenital Anomaly)
  Sender: FDA-Public Use
  Company Number: A0681658A

PATIENT
  Sex: Male
  Weight: 3.2 kg

DRUGS (4)
  1. PAROXETINE HYDROCHLORIDE [Suspect]
     Dosage: 20MG PER DAY
     Dates: start: 20030901, end: 20031001
  2. PAXIL CR [Suspect]
     Dosage: 12.5MG PER DAY
     Dates: start: 20030201, end: 20030601
  3. PRENATAL VITAMINS [Concomitant]
  4. PAXIL [Suspect]
     Dosage: 20MG PER DAY
     Dates: start: 20030701, end: 20030901

REACTIONS (3)
  - DRUG EXPOSURE DURING PREGNANCY [None]
  - VENTRICULAR SEPTAL DEFECT [None]
  - CARDIAC MURMUR [None]
